FAERS Safety Report 9238209 (Version 1)
Quarter: 2013Q1

REPORT INFORMATION
  Report Type: Spontaneous
  Country: US (occurrence: None)
  Receive Date: 20121107
  Receipt Date: 20121107
  Transmission Date: 20140127
  Serious: No
  Sender: FDA-Public Use
  Company Number: 2012HGS-003803

PATIENT
  Age: 49 Year
  Sex: Female
  Weight: 57 kg

DRUGS (14)
  1. BENLYSTA [Suspect]
     Indication: SYSTEMIC LUPUS ERYTHEMATOSUS
     Dosage: 1 IN 4 WK
     Route: 042
     Dates: start: 20120628
  2. PLAQUENIL (HYDROXYCHLOROQUINE PHOSPHATE) (HYDROXCHLOROQUINE PHOSPHATE) [Concomitant]
  3. ARAVA (LEFLUNOMIDE) (LEFLUNOMIDE) [Concomitant]
  4. CELEXA (CITALOPRAM HYDOBROMIDE) (CITALOPRAM HYDROBROMIDE) [Concomitant]
  5. NORCO (VICODIN) (PARACETAMOL, HYDROCODONE BITARTRATE) [Concomitant]
  6. PROBIOTIC (BIFIDOBACTERIUM LACTIS) (BIFIDOBACTERIUM LACTIS) [Concomitant]
  7. PRILOSEC OMEPRAZOLE) (OMEPRAZOLE) [Concomitant]
  8. PREDNISONE (PREDNISONE) (PREDNISONE) [Concomitant]
  9. ROBAXIN (METHOCARBAMOL) (METHOCARBAMOL) [Concomitant]
  10. VALTREX (VALACICLOVIR HYDROCHLORIDE) (VALACICLOVIR HYDROCHLORIDE) [Concomitant]
  11. KLONOPIN [Concomitant]
  12. GABAPENTIN (GABAPENTIN) (GABAPENTIN) [Concomitant]
  13. VITAMIN D (ERGOCACIFEROL) (ERGOCALCIFEROL) [Concomitant]
  14. VITAMIN B12(CYANOCOBALAMIN) (CYANOCOBALAMIN) [Concomitant]

REACTIONS (3)
  - Oedema peripheral [None]
  - Trigeminal nerve disorder [None]
  - Anxiety [None]
